FAERS Safety Report 10379157 (Version 2)
Quarter: 2014Q3

REPORT INFORMATION
  Report Type: Spontaneous
  Country: JP (occurrence: JP)
  Receive Date: 20140812
  Receipt Date: 20140922
  Transmission Date: 20150326
  Serious: Yes (Death)
  Sender: FDA-Public Use
  Company Number: PHHY2008JP045218

PATIENT
  Age: 60 Year
  Sex: Male

DRUGS (2)
  1. INTERFERON NOS [Suspect]
     Active Substance: INTERFERON
  2. GLIVEC [Suspect]
     Active Substance: IMATINIB MESYLATE
     Indication: CHRONIC MYELOID LEUKAEMIA
     Dosage: 300 MG, UNK

REACTIONS (8)
  - Leukaemia recurrent [Fatal]
  - Nervous system disorder [Fatal]
  - Asthenia [Fatal]
  - Chronic myeloid leukaemia [Fatal]
  - Altered state of consciousness [Fatal]
  - Leukoencephalopathy [Fatal]
  - Blast crisis in myelogenous leukaemia [Fatal]
  - Metastases to bone marrow [Fatal]
